FAERS Safety Report 14480053 (Version 1)
Quarter: 2018Q1

REPORT INFORMATION
  Report Type: Spontaneous
  Country: US (occurrence: US)
  Receive Date: 20180201
  Receipt Date: 20180201
  Transmission Date: 20180509
  Serious: Yes (Hospitalization)
  Sender: FDA-Public Use
  Company Number: None

PATIENT
  Age: 74 Year
  Sex: Male
  Weight: 124.2 kg

DRUGS (2)
  1. LEUPROLIDE ACETATE. [Suspect]
     Active Substance: LEUPROLIDE ACETATE
     Dates: end: 20151012
  2. CASODEX [Suspect]
     Active Substance: BICALUTAMIDE
     Dates: end: 20160330

REACTIONS (4)
  - Chest discomfort [None]
  - Myocardial infarction [None]
  - Electrocardiogram ST segment elevation [None]
  - Coronary artery occlusion [None]

NARRATIVE: CASE EVENT DATE: 20170429
